FAERS Safety Report 7755468-X (Version None)
Quarter: 2011Q3

REPORT INFORMATION
  Report Type: 
  Country: None (occurrence: None)
  Receive Date: 20110916
  Receipt Date: 20110913
  Transmission Date: 20111222
  Serious: Yes (Hospitalization)
  Sender: FDA-Public Use
  Company Number: FR-PFIZER INC-2011214855

PATIENT
  Age: 77 Year
  Sex: Male

DRUGS (7)
  1. ATORVASTATIN CALCIUM [Suspect]
     Indication: MYOCARDIAL ISCHAEMIA
     Dosage: UNK
     Route: 048
     Dates: end: 20110813
  2. COLCHICINE [Suspect]
     Dosage: 2 DF, DAILY
     Route: 048
     Dates: start: 20110809, end: 20110809
  3. COLCHICINE [Suspect]
     Indication: GOUT
     Dosage: 3 DF, DAILY
     Route: 048
     Dates: start: 20110808, end: 20110808
  4. COLCHICINE [Suspect]
     Dosage: 1 DF, DAILY
     Route: 048
     Dates: start: 20110810, end: 20110813
  5. PERINDOPRIL ERBUMINE [Suspect]
     Indication: MYOCARDIAL ISCHAEMIA
     Dosage: UNK
     Route: 048
     Dates: end: 20110813
  6. PLAVIX [Concomitant]
     Dosage: UNK
  7. ASPIRIN [Concomitant]
     Dosage: UNK

REACTIONS (5)
  - GOUT [None]
  - RHABDOMYOLYSIS [None]
  - RENAL FAILURE ACUTE [None]
  - HYPERTENSION [None]
  - METABOLIC ACIDOSIS [None]
